FAERS Safety Report 13940688 (Version 1)
Quarter: 2017Q3

REPORT INFORMATION
  Report Type: Spontaneous
  Country: GR (occurrence: GR)
  Receive Date: 20170906
  Receipt Date: 20170906
  Transmission Date: 20171127
  Serious: Yes (Other)
  Sender: FDA-Public Use
  Company Number: GR-NOVOPROD-556750

PATIENT
  Age: 78 Year
  Sex: Male
  Weight: 89 kg

DRUGS (2)
  1. NOVORAPID [Suspect]
     Active Substance: INSULIN ASPART
     Indication: TYPE 2 DIABETES MELLITUS
     Dosage: 30 IU 3 TO 4 TIMES (AS NEEDED) DAILY
     Route: 058
  2. LEVEMIR [Suspect]
     Active Substance: INSULIN DETEMIR
     Indication: TYPE 2 DIABETES MELLITUS
     Dosage: 65 IU
     Route: 058

REACTIONS (3)
  - Needle issue [Recovered/Resolved]
  - Device issue [Unknown]
  - Application site wound [Recovered/Resolved]
